FAERS Safety Report 8641384 (Version 5)
Quarter: 2012Q4

REPORT INFORMATION
  Report Type: 
  Country: JP (occurrence: JP)
  Receive Date: 20120628
  Receipt Date: 20121012
  Transmission Date: 20130627
  Serious: Yes (Hospitalization)
  Sender: FDA-Public Use
  Company Number: JP-B.I. PHARMACEUTICALS,INC./RIDGEFIELD-2012-BP-13216NB

PATIENT
  Age: 80 Year
  Sex: Male
  Weight: 50 kg

DRUGS (3)
  1. PRAZAXA [Suspect]
     Indication: ATRIAL FIBRILLATION
     Dosage: 220 mg
     Route: 048
     Dates: start: 20120416, end: 20120531
  2. LANIRAPID [Concomitant]
     Dosage: 0.1 mg
     Route: 048
  3. ARTIST [Concomitant]
     Dosage: 10 mg
     Route: 048

REACTIONS (2)
  - Haemobilia [Recovered/Resolved]
  - Embolic stroke [Not Recovered/Not Resolved]
